FAERS Safety Report 25457144 (Version 1)
Quarter: 2025Q2

REPORT INFORMATION
  Report Type: Spontaneous
  Country: US (occurrence: US)
  Receive Date: 20250619
  Receipt Date: 20250619
  Transmission Date: 20250717
  Serious: No
  Sender: SANOFI AVENTIS
  Company Number: US-SA-2025SA171775

PATIENT
  Sex: Male

DRUGS (9)
  1. DUPIXENT [Suspect]
     Active Substance: DUPILUMAB
     Indication: Dermatitis atopic
     Dosage: 300 MG, QOW
     Route: 058
  2. AMIODARONE HYDROCHLORIDE [Concomitant]
     Active Substance: AMIODARONE HYDROCHLORIDE
  3. DIPHENOXYLATE [Concomitant]
     Active Substance: DIPHENOXYLATE
  4. ELIQUIS [Concomitant]
     Active Substance: APIXABAN
  5. IRON [Concomitant]
     Active Substance: IRON
  6. MAGNESIUM [Concomitant]
     Active Substance: MAGNESIUM
  7. PROBIOMAX [Concomitant]
  8. TRIAMCINOLONE [Concomitant]
     Active Substance: TRIAMCINOLONE
  9. ZINC [Concomitant]
     Active Substance: ZINC

REACTIONS (1)
  - Injection site swelling [Recovered/Resolved]
